FAERS Safety Report 7402118-8 (Version None)
Quarter: 2011Q1

REPORT INFORMATION
  Report Type: 
  Country: None (occurrence: None)
  Receive Date: 20110331
  Receipt Date: 20110321
  Transmission Date: 20110831
  Serious: Yes (Hospitalization)
  Sender: FDA-Public Use
  Company Number: 868833

PATIENT
  Age: 49 Year
  Sex: Female

DRUGS (8)
  1. FLUDARABINE PHOSPHATE [Suspect]
     Indication: PRODUCT USED FOR UNKNOWN INDICATION
     Dosage: 40 MG MILLIGRAM(S), INTRAVENOUS (NOT OTHERWISE SPECIFIED)
     Route: 042
     Dates: start: 20090707
  2. (IGG) [Suspect]
     Indication: PRODUCT USED FOR UNKNOWN INDICATION
     Dosage: 400 MG MILLIGRAM(S), INTRAVENOUS (NOT OTHERWISE SPECIFIED)
     Route: 042
     Dates: start: 20090707
  3. FLUCONAZOLE [Concomitant]
  4. CYCLOPHOSPHAMIDE [Suspect]
     Indication: PRODUCT USED FOR UNKNOWN INDICATION
     Dosage: 400 MG MILLIGRAM(S), INTRAVENOUS (NOT OTHERWISE SPECIFIED)
     Route: 042
     Dates: start: 20090707
  5. SEPTRA [Concomitant]
  6. COTRIM [Concomitant]
  7. (DOMEPERIDONE) [Concomitant]
  8. ACYCLOVIR [Concomitant]

REACTIONS (2)
  - H1N1 INFLUENZA [None]
  - COMMUNITY ACQUIRED INFECTION [None]
